FAERS Safety Report 10970309 (Version 1)
Quarter: 2015Q1

REPORT INFORMATION
  Report Type: Spontaneous
  Country: US (occurrence: None)
  Receive Date: 20150327
  Receipt Date: 20150327
  Transmission Date: 20150721
  Serious: Yes (Hospitalization)
  Sender: FDA-Public Use
  Company Number: 20150151

PATIENT
  Age: 36 Year
  Sex: Male

DRUGS (1)
  1. ADENOSINE INJECTION, USP (6404-10) 3 MG/ML [Suspect]
     Active Substance: ADENOSINE
     Indication: PRODUCT USED FOR UNKNOWN INDICATION
     Route: 040

REACTIONS (4)
  - Electrocardiogram QRS complex shortened [None]
  - Supraventricular tachycardia [None]
  - Tachycardia [None]
  - No therapeutic response [None]
